FAERS Safety Report 14391674 (Version 10)
Quarter: 2018Q1

REPORT INFORMATION
  Report Type: Report from Study
  Country: US (occurrence: US)
  Receive Date: 20180116
  Receipt Date: 20180330
  Transmission Date: 20180509
  Serious: Yes (Death, Hospitalization, Other)
  Sender: FDA-Public Use
  Company Number: US-BRISTOL-MYERS SQUIBB COMPANY-BMS-2017-119788

PATIENT
  Age: 74 Year
  Sex: Male
  Weight: 66.67 kg

DRUGS (13)
  1. NIVOLUMAB [Suspect]
     Active Substance: NIVOLUMAB
     Indication: MALIGNANT MELANOMA
     Dosage: 67.1 MG, Q3WK
     Route: 065
     Dates: start: 20171221, end: 20171221
  2. HUMALOG [Concomitant]
     Active Substance: INSULIN LISPRO
     Indication: DIABETES MELLITUS
     Dosage: 3 U, QD
     Route: 058
     Dates: start: 20171223, end: 20171228
  3. LANTUS [Concomitant]
     Active Substance: INSULIN GLARGINE
     Indication: PRODUCT USED FOR UNKNOWN INDICATION
     Dosage: 10 U, QD
     Route: 058
     Dates: start: 20171229, end: 20180101
  4. ATORVASTATIN [Concomitant]
     Active Substance: ATORVASTATIN
     Indication: PRODUCT USED FOR UNKNOWN INDICATION
     Dosage: 20 MG, UNK
     Route: 048
     Dates: start: 20180103, end: 20180105
  5. HUMALOG [Concomitant]
     Active Substance: INSULIN LISPRO
     Indication: PRODUCT USED FOR UNKNOWN INDICATION
     Dosage: 6 U, BEFORE MEALS
     Route: 058
     Dates: start: 20171228, end: 20180111
  6. FLUCONAZOLE. [Concomitant]
     Active Substance: FLUCONAZOLE
     Indication: PRODUCT USED FOR UNKNOWN INDICATION
     Dosage: 400 MG, QD
     Route: 042
     Dates: start: 20171231, end: 20180107
  7. IPILIMUMAB [Suspect]
     Active Substance: IPILIMUMAB
     Indication: MALIGNANT MELANOMA
     Dosage: 1 DF, Q3WK
     Route: 065
     Dates: start: 20171221, end: 20171221
  8. NYSTATIN. [Concomitant]
     Active Substance: NYSTATIN
     Indication: HYPERTENSION
     Dosage: 5 ML, QID
     Route: 048
     Dates: start: 20171026
  9. LANTUS [Concomitant]
     Active Substance: INSULIN GLARGINE
     Indication: PRODUCT USED FOR UNKNOWN INDICATION
     Dosage: 15 U, ONCE
     Route: 058
     Dates: start: 20171228, end: 20171228
  10. KLOR-CON [Concomitant]
     Active Substance: POTASSIUM CHLORIDE
     Indication: PRODUCT USED FOR UNKNOWN INDICATION
     Route: 065
  11. LANTUS [Concomitant]
     Active Substance: INSULIN GLARGINE
     Indication: DIABETES MELLITUS
     Dosage: 15 U, QD
     Route: 058
     Dates: start: 20171223, end: 20171227
  12. CRESTOR [Concomitant]
     Active Substance: ROSUVASTATIN CALCIUM
     Indication: METASTASES TO CENTRAL NERVOUS SYSTEM
     Dosage: 40 MG, QD
     Route: 048
     Dates: start: 20171026
  13. HUMALOG [Concomitant]
     Active Substance: INSULIN LISPRO
     Indication: PRODUCT USED FOR UNKNOWN INDICATION
     Dosage: 4 ?G, BEFORE MEALS
     Route: 058
     Dates: start: 20171223, end: 20171228

REACTIONS (14)
  - Hypokalaemia [Unknown]
  - Muscular weakness [Unknown]
  - Malignant neoplasm progression [Fatal]
  - Dysphagia [Unknown]
  - Dehydration [Unknown]
  - Anaemia [Unknown]
  - Skin ulcer [Unknown]
  - Hypotension [Unknown]
  - Hypoxia [Unknown]
  - Dry mouth [Unknown]
  - Constipation [Unknown]
  - Pyrexia [Recovered/Resolved]
  - Acute kidney injury [Unknown]
  - Diarrhoea [Unknown]

NARRATIVE: CASE EVENT DATE: 20171222
